FAERS Safety Report 12174715 (Version 2)
Quarter: 2016Q1

REPORT INFORMATION
  Report Type: Spontaneous
  Country: US (occurrence: US)
  Receive Date: 20160314
  Receipt Date: 20160314
  Transmission Date: 20160526
  Serious: No
  Sender: FDA-Public Use
  Company Number: US-HOSPIRA-2998632

PATIENT
  Age: 66 Year
  Sex: Female

DRUGS (1)
  1. NALBUPHINE HYDROCHLORIDE. [Suspect]
     Active Substance: NALBUPHINE HYDROCHLORIDE
     Indication: RASH
     Dates: start: 20150901

REACTIONS (6)
  - Arthralgia [Recovered/Resolved]
  - Lethargy [Recovered/Resolved]
  - Gout [Recovered/Resolved]
  - Swelling [Recovered/Resolved]
  - Tremor [Recovered/Resolved]
  - Burning sensation [Recovered/Resolved]

NARRATIVE: CASE EVENT DATE: 20150901
